APPROVED DRUG PRODUCT: HYDROCODONE BITARTRATE AND ACETAMINOPHEN
Active Ingredient: ACETAMINOPHEN; HYDROCODONE BITARTRATE
Strength: 325MG;5MG
Dosage Form/Route: TABLET;ORAL
Application: A202991 | Product #001 | TE Code: AA
Applicant: RHODES PHARMACEUTICALS LP
Approved: Apr 12, 2016 | RLD: No | RS: No | Type: RX